FAERS Safety Report 8396758-X (Version None)
Quarter: 2012Q1

REPORT INFORMATION
  Report Type: 
  Country: None (occurrence: None)
  Receive Date: 20120323
  Receipt Date: 20110914
  Transmission Date: 20120608
  Serious: Yes (Hospitalization)
  Sender: FDA-Public Use
  Company Number: 163-21880-11042234

PATIENT
  Age: 82 Year
  Sex: Male

DRUGS (11)
  1. REVLIMID [Suspect]
     Indication: MULTIPLE MYELOMA
     Dosage: 5 MG, QOD ON DAYS 1-21, PO
     Route: 048
     Dates: start: 20110326, end: 20110405
  2. METOPROLOL TARTRATE [Concomitant]
  3. PRAVASTATIN [Concomitant]
  4. NYSTATIN [Concomitant]
  5. MEPHYTON (PHYTOMENADIONE) [Concomitant]
  6. PANTOPRAZOLE [Concomitant]
  7. TAMSULOSIN HCL [Concomitant]
  8. WARFARIN SODIUM [Concomitant]
  9. LOSARTAN POTASSIUM [Concomitant]
  10. LEVAQUIN [Concomitant]
  11. DEXAMETHASONE [Concomitant]

REACTIONS (3)
  - THROMBOCYTOPENIA [None]
  - NEUTROPENIA [None]
  - DRUG INEFFECTIVE [None]
